FAERS Safety Report 8870261 (Version 1)
Quarter: 2012Q4

REPORT INFORMATION
  Report Type: 
  Country: US (occurrence: US)
  Receive Date: 20121023
  Receipt Date: 20121023
  Transmission Date: 20130627
  Serious: Yes (Other)
  Sender: FDA-Public Use
  Company Number: US-AMGEN-USASP2012011736

PATIENT
  Age: 48 Year
  Sex: Male
  Weight: 115.19 kg

DRUGS (2)
  1. ENBREL [Suspect]
     Indication: PSORIASIS
     Dosage: 50 mg, 2 times/wk
     Route: 058
     Dates: start: 20111220
  2. ENBREL [Suspect]
     Dosage: 50 mg, 2 times/wk
     Dates: start: 20110718

REACTIONS (3)
  - Paraesthesia [Not Recovered/Not Resolved]
  - Joint injury [Not Recovered/Not Resolved]
  - Headache [Not Recovered/Not Resolved]
